FAERS Safety Report 11563578 (Version 1)
Quarter: 2015Q3

REPORT INFORMATION
  Report Type: Spontaneous
  Country: US (occurrence: US)
  Receive Date: 20150916
  Receipt Date: 20150916
  Transmission Date: 20151125
  Serious: No
  Sender: FDA-Public Use
  Company Number: US-ELI_LILLY_AND_COMPANY-US200902001414

PATIENT
  Age: 82 Year
  Sex: Female

DRUGS (2)
  1. FORTEO [Suspect]
     Active Substance: TERIPARATIDE
     Dosage: UNK, UNK
     Dates: start: 20080924
  2. PREDNISONE. [Concomitant]
     Active Substance: PREDNISONE
     Dates: start: 200709

REACTIONS (2)
  - Dry eye [Unknown]
  - Vision blurred [Not Recovered/Not Resolved]
